FAERS Safety Report 24612117 (Version 1)
Quarter: 2024Q4

REPORT INFORMATION
  Report Type: Report from Study
  Country: US (occurrence: US)
  Receive Date: 20241113
  Receipt Date: 20241113
  Transmission Date: 20250115
  Serious: Yes (Other)
  Sender: ABBVIE
  Company Number: US-ABBVIE-5996898

PATIENT
  Sex: Female

DRUGS (1)
  1. HUMIRA [Suspect]
     Active Substance: ADALIMUMAB
     Indication: Product used for unknown indication
     Dosage: HUMIRA CITRATE FREE
     Route: 058
     Dates: start: 20220901, end: 20240718

REACTIONS (2)
  - Intestinal stenosis [Recovering/Resolving]
  - Cholecystectomy [Recovering/Resolving]
